FAERS Safety Report 5948934-0 (Version None)
Quarter: 2008Q4

REPORT INFORMATION
  Report Type: 
  Country: None (occurrence: None)
  Receive Date: 20081111
  Receipt Date: 20081031
  Transmission Date: 20090506
  Serious: Yes (Other)
  Sender: FDA-Public Use
  Company Number: US-PFIZER INC-2008078351

PATIENT
  Sex: Male
  Weight: 80 kg

DRUGS (14)
  1. LIPITOR [Suspect]
     Indication: BLOOD CHOLESTEROL INCREASED
     Route: 048
     Dates: start: 20030101, end: 20080912
  2. LIPITOR [Suspect]
  3. ACETYLSALICYLIC ACID SRT [Concomitant]
  4. MULTI-VITAMINS [Concomitant]
  5. AVODART [Concomitant]
  6. SAW PALMETTO [Concomitant]
  7. VITAMIN B-12 [Concomitant]
  8. CHONDROITIN/GLUCOSAMINE [Concomitant]
     Dosage: TEXT:ONE TABLET THREE TIMES EACH DAY
  9. FISH OIL [Concomitant]
  10. XANAX [Concomitant]
  11. PERCOCET [Concomitant]
     Dosage: TEXT:5/325 MG AT BEDTIME
  12. VIAGRA [Concomitant]
  13. ATENOLOL [Concomitant]
  14. ANTIDIARRHOEAL MICROORGANISMS [Concomitant]

REACTIONS (3)
  - BLOOD BILIRUBIN INCREASED [None]
  - BLOOD CREATINE PHOSPHOKINASE INCREASED [None]
  - MYALGIA [None]
